FAERS Safety Report 12659782 (Version 1)
Quarter: 2016Q3

REPORT INFORMATION
  Report Type: Spontaneous
  Country: US (occurrence: US)
  Receive Date: 20160817
  Receipt Date: 20160817
  Transmission Date: 20161109
  Serious: No
  Sender: FDA-Public Use
  Company Number: US-SHIRE-2015DX000513

PATIENT

DRUGS (6)
  1. FIRAZYR [Concomitant]
     Active Substance: ICATIBANT ACETATE
     Indication: HEREDITARY ANGIOEDEMA
     Dosage: 30 MG, 1X/DAY:QD
     Route: 058
     Dates: start: 20151218, end: 20151218
  2. METHOCARBAM [Concomitant]
     Indication: MUSCLE RELAXANT THERAPY
     Dosage: 500 MG, UNKNOWN
     Route: 048
     Dates: end: 201512
  3. KALBITOR [Suspect]
     Active Substance: ECALLANTIDE
     Dosage: AS REQ^D
     Route: 058
  4. FIRAZYR [Concomitant]
     Active Substance: ICATIBANT ACETATE
     Dosage: 30 MG, 1X/DAY:QD
     Route: 058
     Dates: start: 20151216, end: 20151216
  5. KALBITOR [Suspect]
     Active Substance: ECALLANTIDE
     Indication: HEREDITARY ANGIOEDEMA
     Dosage: 1X/DAY:QD
     Route: 058
  6. TRAMADOL. [Concomitant]
     Active Substance: TRAMADOL
     Indication: PRODUCT USED FOR UNKNOWN INDICATION
     Dosage: 50 MG, AS REQ^D
     Route: 048
     Dates: end: 201512

REACTIONS (1)
  - Arthralgia [Recovered/Resolved]
